FAERS Safety Report 8429544-2 (Version None)
Quarter: 2012Q2

REPORT INFORMATION
  Report Type: 
  Country: None (occurrence: None)
  Receive Date: 20120612
  Receipt Date: 20120604
  Transmission Date: 20120825
  Serious: Yes (Hospitalization)
  Sender: FDA-Public Use
  Company Number: US-CELGENEUS-163-21880-12060721

PATIENT
  Sex: Male

DRUGS (2)
  1. GABAPENTIN [Concomitant]
     Dosage: 100 MILLIGRAM
     Route: 065
  2. REVLIMID [Suspect]
     Indication: MULTIPLE MYELOMA
     Dosage: 10 MILLIGRAM
     Route: 048
     Dates: start: 20111208

REACTIONS (3)
  - PNEUMONIA [None]
  - CYSTITIS [None]
  - CARDIAC DISORDER [None]
